FAERS Safety Report 9730144 (Version 3)
Quarter: 2014Q1

REPORT INFORMATION
  Report Type: Spontaneous
  Country: US (occurrence: US)
  Receive Date: 20131204
  Receipt Date: 20140121
  Transmission Date: 20141002
  Serious: No
  Sender: FDA-Public Use
  Company Number: US-GILEAD-2013-0089071

PATIENT
  Sex: Female

DRUGS (2)
  1. LETAIRIS [Suspect]
     Indication: PULMONARY ARTERIAL HYPERTENSION
     Dosage: 5 MG, QD
     Route: 048
     Dates: start: 20131029
  2. LETAIRIS [Suspect]
     Indication: PORTOPULMONARY HYPERTENSION

REACTIONS (9)
  - Weight increased [Unknown]
  - Local swelling [Unknown]
  - Oedema peripheral [Unknown]
  - Local swelling [Unknown]
  - Local swelling [Unknown]
  - Fatigue [Unknown]
  - Asthenia [Unknown]
  - Dyspnoea [Unknown]
  - Weight increased [Unknown]
